FAERS Safety Report 14569089 (Version 1)
Quarter: 2018Q1

REPORT INFORMATION
  Report Type: Spontaneous
  Country: US (occurrence: US)
  Receive Date: 20180223
  Receipt Date: 20180223
  Transmission Date: 20180509
  Serious: No
  Sender: FDA-Public Use
  Company Number: US-DRREDDYS-USA/USA/17/0093961

PATIENT
  Age: 22 Year
  Sex: Female
  Weight: 65.9 kg

DRUGS (1)
  1. MINOCYCLINE HYDROCHLORIDE 100 MG [Suspect]
     Active Substance: MINOCYCLINE HYDROCHLORIDE
     Indication: ACNE
     Route: 048
     Dates: start: 20170912, end: 20170913

REACTIONS (4)
  - Nausea [Recovered/Resolved]
  - Product quality issue [Unknown]
  - Vomiting [Recovered/Resolved]
  - Headache [Recovered/Resolved]

NARRATIVE: CASE EVENT DATE: 20170912
